FAERS Safety Report 8297935-9 (Version None)
Quarter: 2012Q2

REPORT INFORMATION
  Report Type: 
  Country: None (occurrence: None)
  Receive Date: 20120419
  Receipt Date: 20100601
  Transmission Date: 20120825
  Serious: Yes (Hospitalization, Other)
  Sender: FDA-Public Use
  Company Number: US-BAYER-200938849NA

PATIENT
  Age: 21 Year
  Sex: Female
  Weight: 58.05 kg

DRUGS (28)
  1. ANTIBIOTICS [Concomitant]
     Dosage: UNK
     Dates: start: 20070101
  2. CIPROFLOXACIN [Concomitant]
  3. ONDANSETRON [Concomitant]
  4. ACIDOPHILUS [Concomitant]
     Dosage: UNK UNK, PRN
  5. CIPROFLOXACIN [Concomitant]
  6. COLACE [Concomitant]
  7. PERCOCET [Concomitant]
  8. VICODIN [Concomitant]
     Dosage: UNK UNK, PRN
  9. RANITIDINE [Concomitant]
  10. HYDROCODONE [Concomitant]
  11. MIRALAX [Concomitant]
  12. YAZ [Suspect]
     Indication: ACNE
  13. METOCLOPRAMIDE [Concomitant]
     Dosage: UNK UNK, PRN
  14. YAZ [Suspect]
     Indication: CONTRACEPTION
     Dosage: UNK
     Dates: start: 20070806, end: 20090501
  15. OXYCODONE HCL [Concomitant]
  16. HYOSCYAMINE [Concomitant]
     Dosage: UNK UNK, PRN
  17. NEXIUM [Concomitant]
     Dosage: UNK UNK, QD
     Dates: end: 20080410
  18. ANTICONVULSIVE [Concomitant]
     Dosage: UNK
     Dates: start: 20070801, end: 20100101
  19. ANTIBIOTICS [Concomitant]
     Dosage: UNK
     Dates: start: 20080401
  20. CEPHALEXIN [Concomitant]
  21. NEXIUM [Concomitant]
  22. PROMETHAZINE [Concomitant]
  23. DIGESTIVE ENZYMES [Concomitant]
     Dosage: UNK UNK, PRN
  24. IBUPROFEN [Concomitant]
     Dosage: UNK UNK, PRN
     Dates: start: 20070101
  25. FLUOXETINE [Concomitant]
  26. FAMOTIDINE [Concomitant]
  27. PROCHLORPERAZINE [Concomitant]
  28. SPIRONOLACTONE [Concomitant]

REACTIONS (5)
  - CHOLECYSTITIS CHRONIC [None]
  - NEPHROLITHIASIS [None]
  - BILIARY DYSKINESIA [None]
  - CHOLECYSTECTOMY [None]
  - PANCREATITIS [None]
